FAERS Safety Report 17107103 (Version 1)
Quarter: 2019Q4

REPORT INFORMATION
  Report Type: Spontaneous
  Country: FR (occurrence: FR)
  Receive Date: 20191203
  Receipt Date: 20191203
  Transmission Date: 20200122
  Serious: Yes (Death, Other)
  Sender: FDA-Public Use
  Company Number: FR-MYLANLABS-2019M1116705

PATIENT
  Age: 53 Year
  Sex: Male
  Weight: 86 kg

DRUGS (6)
  1. CORTANCYL [Suspect]
     Active Substance: PREDNISONE
     Indication: MUSCULAR WEAKNESS
     Dosage: 30 MILLIGRAM, QD
     Route: 048
     Dates: end: 20190510
  2. ATARAX [Suspect]
     Active Substance: HYDROXYZINE HYDROCHLORIDE
     Indication: QUADRIPLEGIA
     Dosage: 25 MILLIGRAM, QD
     Route: 048
     Dates: end: 20190510
  3. OXYNORMORO [Suspect]
     Active Substance: OXYCODONE HYDROCHLORIDE
     Indication: QUADRIPLEGIA
     Dosage: 6 DOSAGE FORM, QD
     Route: 048
     Dates: end: 20190510
  4. DUROGESIC [Suspect]
     Active Substance: FENTANYL
     Indication: QUADRIPLEGIA
     Dosage: 1 DOSAGE FORM, Q3D
     Route: 062
     Dates: end: 20190508
  5. MIDAZOLAM [Suspect]
     Active Substance: MIDAZOLAM HYDROCHLORIDE
     Indication: QUADRIPLEGIA
     Dosage: 30 MILLIGRAM, QD
  6. LYSANXIA [Suspect]
     Active Substance: PRAZEPAM
     Indication: QUADRIPLEGIA
     Dosage: 25 GTT DROPS, QD
     Dates: end: 20190510

REACTIONS (3)
  - Somnolence [Recovered/Resolved]
  - Coma [Recovered/Resolved]
  - Pneumonia [Fatal]

NARRATIVE: CASE EVENT DATE: 20190503
